FAERS Safety Report 6788564-4 (Version None)
Quarter: 2010Q2

REPORT INFORMATION
  Report Type: 
  Country: None (occurrence: None)
  Receive Date: 20100623
  Receipt Date: 20080506
  Transmission Date: 20101027
  Serious: Yes (Other)
  Sender: FDA-Public Use
  Company Number: US-PFIZER INC-2008025654

PATIENT
  Sex: Female
  Weight: 141 kg

DRUGS (14)
  1. DAYPRO [Suspect]
     Route: 048
     Dates: start: 20071108, end: 20080319
  2. NAPROXEN [Suspect]
  3. ALL OTHER THERAPEUTIC PRODUCTS [Suspect]
  4. LOTREL [Concomitant]
     Dosage: 5/20 DAILY
  5. NORTRIPTYLINE [Concomitant]
     Dosage: AT BEDTIME
  6. VOSOL HC [Concomitant]
     Dates: start: 20071211
  7. MUCINEX [Concomitant]
  8. FIORICET W/ CODEINE [Concomitant]
     Indication: MIGRAINE
  9. KUTRASE [Concomitant]
     Dosage: DAILY
  10. ACETYLSALICYLIC ACID [Concomitant]
     Dosage: DAILY
  11. ZOCOR [Concomitant]
     Dosage: AT BEDTIME
  12. TYLENOL (CAPLET) [Concomitant]
     Dosage: DAILY
  13. ALL OTHER THERAPEUTIC PRODUCTS [Concomitant]
  14. FLEXERIL [Concomitant]

REACTIONS (1)
  - RENAL FAILURE [None]
